FAERS Safety Report 7920084-3 (Version None)
Quarter: 2011Q4

REPORT INFORMATION
  Report Type: 
  Country: None (occurrence: None)
  Receive Date: 20111117
  Receipt Date: 20111104
  Transmission Date: 20120403
  Serious: Yes (Other)
  Sender: FDA-Public Use
  Company Number: US-ROCHE-1010264

PATIENT
  Sex: Female

DRUGS (2)
  1. KLONOPIN [Suspect]
     Indication: PRODUCT USED FOR UNKNOWN INDICATION
  2. KLONOPIN [Suspect]

REACTIONS (11)
  - PANCREATITIS [None]
  - DYSURIA [None]
  - NAUSEA [None]
  - BLOOD PRESSURE DECREASED [None]
  - CHEST DISCOMFORT [None]
  - PAIN [None]
  - INFLUENZA LIKE ILLNESS [None]
  - SOMNOLENCE [None]
  - EPIGASTRIC DISCOMFORT [None]
  - ASTHENIA [None]
  - DRUG WITHDRAWAL SYNDROME [None]
